FAERS Safety Report 8274074-4 (Version None)
Quarter: 2012Q2

REPORT INFORMATION
  Report Type: 
  Country: None (occurrence: None)
  Receive Date: 20120406
  Receipt Date: 20120406
  Transmission Date: 20120825
  Serious: Yes (Disabling)
  Sender: FDA-Public Use
  Company Number: None

PATIENT
  Sex: Female
  Weight: 76.2043 kg

DRUGS (9)
  1. IMIPRAMINE [Suspect]
     Dosage: 75MG 2. H.S PO
     Route: 048
  2. VITAMIN B-12 [Concomitant]
  3. IBUPROFEN [Concomitant]
  4. ADVAIR DISKUS 100/50 [Concomitant]
  5. XANAX [Concomitant]
  6. LEXOPRO [Concomitant]
  7. TRIGLIDE [Concomitant]
  8. BONIVA [Concomitant]
  9. PLAQUENIL [Concomitant]

REACTIONS (2)
  - DRUG DISPENSING ERROR [None]
  - ACCIDENTAL OVERDOSE [None]
